FAERS Safety Report 20146518 (Version 2)
Quarter: 2022Q1

REPORT INFORMATION
  Report Type: Spontaneous
  Country: AT (occurrence: AT)
  Receive Date: 20211203
  Receipt Date: 20220124
  Transmission Date: 20220424
  Serious: Yes (Other)
  Sender: FDA-Public Use
  Company Number: AT-ROCHE-2951438

PATIENT
  Age: 52 Year
  Sex: Male

DRUGS (4)
  1. RITUXIMAB [Suspect]
     Active Substance: RITUXIMAB
     Indication: Diffuse large B-cell lymphoma
     Dosage: UNK, 2 RCHOP CYCLES (1ST LINE OF TREATMENT)
     Route: 065
     Dates: start: 20201201, end: 20210101
  2. RITUXIMAB [Suspect]
     Active Substance: RITUXIMAB
     Dosage: UNK, (2ND LINE OF TREATMENT )
     Route: 065
     Dates: start: 20210201, end: 20210301
  3. OBINUTUZUMAB [Suspect]
     Active Substance: OBINUTUZUMAB
     Indication: Diffuse large B-cell lymphoma
     Dosage: UNK
     Route: 065
     Dates: start: 20210513, end: 20210515
  4. POLATUZUMAB VEDOTIN [Suspect]
     Active Substance: POLATUZUMAB VEDOTIN
     Indication: Diffuse large B-cell lymphoma
     Dosage: UNK, (THIRD LINE OF TREATMENT )
     Route: 065
     Dates: start: 20210401, end: 20210430

REACTIONS (4)
  - Lymphoma [Unknown]
  - Pneumonia [Recovered/Resolved]
  - Frustration tolerance decreased [Unknown]
  - Depression [Unknown]

NARRATIVE: CASE EVENT DATE: 20210930
